FAERS Safety Report 22083614 (Version 3)
Quarter: 2023Q1

REPORT INFORMATION
  Report Type: Spontaneous
  Country: SE (occurrence: SE)
  Receive Date: 20230310
  Receipt Date: 20230321
  Transmission Date: 20230417
  Serious: Yes (Hospitalization, Other)
  Sender: FDA-Public Use
  Company Number: SE-MPA-2023-001510

PATIENT
  Age: 19 Year
  Sex: Male

DRUGS (5)
  1. OLANZAPINE [Suspect]
     Active Substance: OLANZAPINE
     Indication: Product used for unknown indication
     Dosage: 140 MILLIGRAM, 1 TOTAL (28 ST OLANZAPIN 5 MG)
     Route: 048
     Dates: start: 20190604, end: 20190604
  2. OLANZAPINE [Suspect]
     Active Substance: OLANZAPINE
     Dosage: 52.5 MILLIGRAM (140 MILLIGRAM, 1 TOTAL (28 ST OLANZAPIN 5 MG))
     Route: 048
     Dates: start: 20190604, end: 20190604
  3. QUETIAPINE [Suspect]
     Active Substance: QUETIAPINE
     Indication: Product used for unknown indication
     Dosage: 1000 MILLIGRAM (40 ST QUETIPAIN 25 MG)
     Route: 048
     Dates: start: 20190604, end: 20190604
  4. MIRTAZAPINE [Suspect]
     Active Substance: MIRTAZAPINE
     Indication: Product used for unknown indication
     Dosage: 810 MILLIGRAM (27 ST MIRTAZAPIN 30 MG)
     Route: 048
     Dates: start: 20190604, end: 20190604
  5. VENLAFAXINE [Suspect]
     Active Substance: VENLAFAXINE HYDROCHLORIDE
     Indication: Product used for unknown indication
     Dosage: MINST 50 ST VENLAFAXIN 75 MG
     Route: 048
     Dates: start: 20190604, end: 20190604

REACTIONS (6)
  - Tachycardia [Unknown]
  - Akathisia [Unknown]
  - Depressed level of consciousness [Unknown]
  - Fatigue [Unknown]
  - Intentional overdose [Unknown]
  - Intentional self-injury [Unknown]

NARRATIVE: CASE EVENT DATE: 20190604
